FAERS Safety Report 19845505 (Version 1)
Quarter: 2021Q3

REPORT INFORMATION
  Report Type: Spontaneous
  Country: US (occurrence: US)
  Receive Date: 20210917
  Receipt Date: 20210917
  Transmission Date: 20211014
  Serious: Yes (Other)
  Sender: FDA-Public Use
  Company Number: None

PATIENT
  Age: 64 Year
  Sex: Male
  Weight: 75.15 kg

DRUGS (8)
  1. VITAMIN C [Concomitant]
     Active Substance: ASCORBIC ACID
  2. ELIQUISE [Concomitant]
  3. MULTIVITAMIN [Concomitant]
     Active Substance: VITAMINS
  4. LISINOPRIL. [Concomitant]
     Active Substance: LISINOPRIL
  5. FINASTERIDE. [Concomitant]
     Active Substance: FINASTERIDE
  6. REGEN?COV [Suspect]
     Active Substance: CASIRIVIMAB\IMDEVIMAB
     Indication: COVID-19
     Dosage: ?          QUANTITY:4 INJECTION(S);OTHER FREQUENCY:GIVEN ONCE;?
     Route: 058
     Dates: start: 20210911, end: 20210911
  7. ATORVASTIN [Concomitant]
     Active Substance: ATORVASTATIN
  8. CETIRIZINE [Concomitant]
     Active Substance: CETIRIZINE HYDROCHLORIDE

REACTIONS (3)
  - Pruritus [None]
  - Rash [None]
  - Acne [None]

NARRATIVE: CASE EVENT DATE: 20210916
